FAERS Safety Report 9087359 (Version 2)
Quarter: 2013Q1

REPORT INFORMATION
  Report Type: Report from Study
  Country: JP (occurrence: JP)
  Receive Date: 20130131
  Receipt Date: 20130221
  Transmission Date: 20140127
  Serious: Yes (Death)
  Sender: FDA-Public Use
  Company Number: JP-PFIZER INC-2013035046

PATIENT
  Age: 69 Year
  Sex: Female
  Weight: 35 kg

DRUGS (4)
  1. REVATIO [Suspect]
     Indication: CHRONIC OBSTRUCTIVE PULMONARY DISEASE
     Dosage: 20 MG, 3X/DAY
     Route: 048
     Dates: start: 20101122
  2. PROCYLIN [Concomitant]
     Indication: PULMONARY HYPERTENSION
     Dosage: UNK
     Route: 048
  3. LASIX [Concomitant]
     Indication: RIGHT VENTRICULAR FAILURE
     Dosage: UNK
     Route: 048
  4. ALDACTONE-A [Concomitant]
     Indication: RIGHT VENTRICULAR FAILURE
     Dosage: UNK
     Route: 048

REACTIONS (1)
  - Atrial fibrillation [Fatal]
